FAERS Safety Report 8107017-4 (Version None)
Quarter: 2012Q1

REPORT INFORMATION
  Report Type: 
  Country: None (occurrence: None)
  Receive Date: 20120202
  Receipt Date: 20120202
  Transmission Date: 20120608
  Serious: Yes (Congenital Anomaly)
  Sender: FDA-Public Use
  Company Number: None

PATIENT
  Sex: Male
  Weight: 3.6287 kg

DRUGS (1)
  1. NUVARING [Suspect]
     Indication: CONTRACEPTION
     Dosage: 1 RING
     Route: 067
     Dates: start: 20070919, end: 20101209

REACTIONS (5)
  - ADACTYLY [None]
  - SYNDACTYLY [None]
  - CONGENITAL CLEFT HAND [None]
  - MATERNAL DRUGS AFFECTING FOETUS [None]
  - MATERNAL EXPOSURE BEFORE PREGNANCY [None]
